FAERS Safety Report 7240845-6 (Version None)
Quarter: 2011Q1

REPORT INFORMATION
  Report Type: 
  Country: None (occurrence: None)
  Receive Date: 20110120
  Receipt Date: 20110120
  Transmission Date: 20110831
  Serious: Yes (Hospitalization, Other)
  Sender: FDA-Public Use
  Company Number: None

PATIENT
  Sex: Female
  Weight: 81.6475 kg

DRUGS (5)
  1. COUMADIN [Suspect]
     Dosage: 5MG TABLET DAILY ORAL
     Route: 048
  2. (TARTRAZINE) [Suspect]
  3. ASPIRIN [Suspect]
  4. VITAMINS DAILY [Suspect]
  5. TIKOSYN [Suspect]
     Dosage: 1 DAILY (500MCG) DAILY ORAL
     Route: 048

REACTIONS (4)
  - WHEEZING [None]
  - RASH [None]
  - FATIGUE [None]
  - DYSPNOEA [None]
